FAERS Safety Report 13895875 (Version 1)
Quarter: 2017Q3

REPORT INFORMATION
  Report Type: Spontaneous
  Country: US (occurrence: US)
  Receive Date: 20170820
  Receipt Date: 20170820
  Transmission Date: 20171127
  Serious: Yes (Death)
  Sender: FDA-Public Use
  Company Number: None

PATIENT
  Age: 65 Year
  Sex: Female
  Weight: 47.25 kg

DRUGS (1)
  1. PROLIA [Suspect]
     Active Substance: DENOSUMAB

REACTIONS (3)
  - Immune system disorder [None]
  - Platelet count decreased [None]
  - Cardiac failure [None]

NARRATIVE: CASE EVENT DATE: 20170718
